FAERS Safety Report 6145129-5 (Version None)
Quarter: 2009Q2

REPORT INFORMATION
  Report Type: 
  Country: None (occurrence: None)
  Receive Date: 20090402
  Receipt Date: 20090113
  Transmission Date: 20091009
  Serious: No
  Sender: FDA-Public Use
  Company Number: 1000004726

PATIENT
  Age: 46 Year
  Sex: Female
  Weight: 74.39 kg

DRUGS (1)
  1. BYSTOLIC [Suspect]
     Indication: BLOOD PRESSURE
     Dosage: 1 IN 1 D, ORAL
     Route: 048
     Dates: start: 20081120, end: 20081125

REACTIONS (2)
  - OEDEMA PERIPHERAL [None]
  - RASH [None]
